FAERS Safety Report 4542127-X (Version None)
Quarter: 2004Q4

REPORT INFORMATION
  Report Type: 
  Country: None (occurrence: None)
  Receive Date: 20041230
  Receipt Date: 20041124
  Transmission Date: 20050328
  Serious: Yes (Death, Life-Threatening, Hospitalization, Disabling, Other)
  Sender: FDA-Public Use
  Company Number: US-MERCK-0411USA03979

PATIENT
  Age: 49 Year
  Sex: Male
  Weight: 100 kg

DRUGS (2)
  1. VIOXX [Suspect]
     Indication: ARTHRALGIA
     Route: 048
     Dates: start: 20020725
  2. VIOXX [Suspect]
     Route: 048
     Dates: start: 20020725

REACTIONS (4)
  - ACUTE MYOCARDIAL INFARCTION [None]
  - DEATH [None]
  - EJECTION FRACTION DECREASED [None]
  - HYPERLIPIDAEMIA [None]
